FAERS Safety Report 7724977 (Version 2)
Quarter: 2013Q1

REPORT INFORMATION
  Report Type: Spontaneous
  Country: CA (occurrence: CA)
  Receive Date: 20101221
  Receipt Date: 20130207
  Transmission Date: 20140127
  Serious: Yes (Hospitalization, Other)
  Sender: FDA-Public Use
  Company Number: CA-ABBOTT-10P-028-0691557-00

PATIENT
  Age: 48 None
  Sex: Male
  Weight: 67.19 kg

DRUGS (7)
  1. BIAXIN XL [Suspect]
     Indication: BRONCHITIS
     Route: 048
     Dates: start: 20060506, end: 20060513
  2. TWINRIX [Concomitant]
     Indication: PROPHYLAXIS
     Dosage: 2 DOSES TOTAL
     Route: 030
     Dates: start: 20061121
  3. TWINRIX [Concomitant]
     Indication: HEPATITIS A
  4. TWINRIX [Concomitant]
     Indication: HEPATITIS B
  5. FLOVENT [Concomitant]
     Indication: PRODUCT USED FOR UNKNOWN INDICATION
  6. SALBUTAMOL [Concomitant]
     Indication: ASTHMA
  7. SALBUTAMOL [Concomitant]
     Indication: BRONCHITIS

REACTIONS (14)
  - Bipolar I disorder [Recovered/Resolved]
  - Self injurious behaviour [Unknown]
  - Self injurious behaviour [Unknown]
  - Self injurious behaviour [Unknown]
  - Aggression [Unknown]
  - Suicide attempt [Recovered/Resolved with Sequelae]
  - Fatigue [Unknown]
  - Incoherent [Unknown]
  - Anxiety [Unknown]
  - Restlessness [Unknown]
  - Hypertension [Not Recovered/Not Resolved]
  - Conjunctivitis allergic [Recovered/Resolved]
  - Abnormal behaviour [Unknown]
  - Nasopharyngitis [Recovered/Resolved]
